FAERS Safety Report 8614746-2 (Version None)
Quarter: 2012Q3

REPORT INFORMATION
  Report Type: 
  Country: None (occurrence: None)
  Receive Date: 20120823
  Receipt Date: 20120817
  Transmission Date: 20120928
  Serious: Yes (Other)
  Sender: FDA-Public Use
  Company Number: BR-PFIZER INC-2012202063

PATIENT
  Sex: Female

DRUGS (1)
  1. NORDETTE-21 [Suspect]
     Indication: CONTRACEPTION
     Dosage: [LEVONORGESTREL 0,15 MG]/ [ETHINYL ESTRADIOL 0.03 MG] PER DAY
     Route: 048

REACTIONS (1)
  - URINARY TRACT INFECTION [None]
